FAERS Safety Report 11009967 (Version 1)
Quarter: 2015Q2

REPORT INFORMATION
  Report Type: Report from Study
  Country: JP (occurrence: JP)
  Receive Date: 20150410
  Receipt Date: 20150410
  Transmission Date: 20150821
  Serious: Yes (Hospitalization)
  Sender: FDA-Public Use
  Company Number: JP-ACTELION-A-CH2015-115802

PATIENT
  Age: 73 Year
  Sex: Male
  Weight: 71 kg

DRUGS (10)
  1. RABEPRAZOLE [Concomitant]
     Active Substance: RABEPRAZOLE
  2. JUVELA N [Concomitant]
     Active Substance: TOCOPHERYL NICOTINATE, D-.ALPHA.
  3. CALONAL [Concomitant]
     Active Substance: ACETAMINOPHEN
     Dosage: UNK
     Dates: start: 20140203
  4. FEBURIC [Concomitant]
     Active Substance: FEBUXOSTAT
  5. FLUITRAN [Concomitant]
     Active Substance: TRICHLORMETHIAZIDE
     Dosage: UNK
     Dates: start: 20140331
  6. ANPLAG [Concomitant]
     Active Substance: SARPOGRELATE
  7. BOSENTAN [Suspect]
     Active Substance: BOSENTAN\BOSENTAN MONOHYDRATE
     Indication: SKIN ULCER
     Dosage: 250 MG, BID
     Route: 048
     Dates: start: 20131101
  8. PLETAAL [Concomitant]
     Active Substance: CILOSTAZOL
  9. BOSENTAN [Suspect]
     Active Substance: BOSENTAN\BOSENTAN MONOHYDRATE
     Dosage: 125 MG, BID
     Route: 048
     Dates: start: 20130814, end: 20131101
  10. AMLODIN [Concomitant]
     Active Substance: AMLODIPINE BESYLATE
     Dosage: UNK
     Dates: start: 20140106

REACTIONS (10)
  - Procalcitonin increased [Unknown]
  - Large intestine polyp [Recovered/Resolved]
  - Intestinal polypectomy [Recovered/Resolved]
  - Mean cell haemoglobin decreased [Unknown]
  - Haemoglobin decreased [Unknown]
  - Haematocrit decreased [Unknown]
  - Blood lactate dehydrogenase increased [Unknown]
  - Red blood cell count decreased [Unknown]
  - Mean cell volume decreased [Unknown]
  - Red cell distribution width increased [Unknown]

NARRATIVE: CASE EVENT DATE: 20150401
